FAERS Safety Report 24297711 (Version 3)
Quarter: 2025Q1

REPORT INFORMATION
  Report Type: Spontaneous
  Country: ES (occurrence: ES)
  Receive Date: 20240909
  Receipt Date: 20250317
  Transmission Date: 20250408
  Serious: Yes (Other)
  Sender: MYLAN
  Company Number: ES-TEVA-VS-3226277

PATIENT
  Age: 36 Year
  Sex: Female
  Weight: 83.3 kg

DRUGS (27)
  1. PREGABALIN [Interacting]
     Active Substance: PREGABALIN
     Indication: Product used for unknown indication
     Dosage: 2 DOSAGE FORM, QD (75 MG 56 TABLETS/2 C/24 H/0 - 0 - 2 - 0) (2 TABLET/24H)
  2. EBASTINE [Interacting]
     Active Substance: EBASTINE
     Indication: Product used for unknown indication
     Dosage: 20 MILLIGRAM, QD (20 TABLETS 1 TABLET/24 H)
  3. EBASTINE [Interacting]
     Active Substance: EBASTINE
     Dosage: 1 DOSAGE FORM, QD (1 EVERY/24H)
  4. FENTANYL [Interacting]
     Active Substance: FENTANYL
     Indication: Product used for unknown indication
     Dosage: 1 DOSAGE FORM, QD (200 MCG 30 TABLETS SUCK/1 TABLET/24 H)
  5. FENTANYL [Interacting]
     Active Substance: FENTANYL
     Indication: Product used for unknown indication
     Dosage: 1 DOSAGE FORM, (133 MCG 30 COMP SUBLIN/1 TABLET/24 H)
  6. FENTANYL [Interacting]
     Active Substance: FENTANYL
     Dosage: 200 MCG, 1 EVERY 24H/1 DOSAGE FORM, DAILY (ONE TABLET/DAY)/ORAL USE
  7. HYDROMORPHONE [Interacting]
     Active Substance: HYDROMORPHONE
     Indication: Product used for unknown indication
     Dosage: 2 DOSAGE FORM, QD (8 MG 56 TABLETS/2 COMP/24 H/0 - 0 - 0 - 2) (2 TABLET/24H)
     Dates: end: 202103
  8. TERBUTALINE [Interacting]
     Active Substance: TERBUTALINE
     Indication: Product used for unknown indication
     Dosage: 500 MICROGRAM, QD (500 MCG/INH /1 INH/24 H) (1 DF, QD)
  9. AMITRIPTYLINE HYDROCHLORIDE [Interacting]
     Active Substance: AMITRIPTYLINE HYDROCHLORIDE
     Indication: Product used for unknown indication
     Dosage: 1 DOSAGE FORM, QD (1 EVERY/24H)
  10. BECLOMETHASONE\FORMOTEROL [Interacting]
     Active Substance: BECLOMETHASONE\FORMOTEROL
     Indication: Product used for unknown indication
     Dosage: 1 DOSAGE FORM, BID (1 INHALATION/12H)
  11. TRYPTIZOL [Interacting]
     Active Substance: AMITRIPTYLINE HYDROCHLORIDE
     Indication: Product used for unknown indication
     Dosage: 25 MILLIGRAM, QD (1 DOSAGE FORM, DAILY (ONE TABLET/DAY (0 - 0 - 0 -1)))
  12. BECLOMETHASONE DIPROPIONATE [Interacting]
     Active Substance: BECLOMETHASONE DIPROPIONATE
     Indication: Product used for unknown indication
     Dosage: 100/6 MCG INH, 1 INH/12H/UNK (ONE INH./12 H)
  13. FLUTICASONE [Concomitant]
     Active Substance: FLUTICASONE
     Indication: Product used for unknown indication
     Dosage: 2 DOSAGE FORM, QD (27.5 MCG/PULV/2 PCS/24 H)
  14. LEVOTHYROXINE SODIUM [Concomitant]
     Active Substance: LEVOTHYROXINE SODIUM
     Indication: Product used for unknown indication
     Dosage: 1 DOSAGE FORM, QD (75 MCG 100 TABLETS/1 TABLET/24 H/1 - 0 - 0 - 0)
  15. ZOLPIDEM [Interacting]
     Active Substance: ZOLPIDEM TARTRATE
     Indication: Product used for unknown indication
     Dosage: 10 MILLIGRAM, QD (10 MG 30 TABLETS/1 C/24 H 0 - 0 - 0 - 1)
  16. ZOLPIDEM [Interacting]
     Active Substance: ZOLPIDEM TARTRATE
     Dosage: 1 DOSAGE FORM, QD (1 EVERY/24H)
  17. EPINEPHRINE [Concomitant]
     Active Substance: EPINEPHRINE
     Indication: Product used for unknown indication
  18. CALCIFEDIOL [Concomitant]
     Active Substance: CALCIFEDIOL
     Indication: Product used for unknown indication
     Dosage: 1 DOSAGE FORM, MONTHLY (0.266 MG 10 CAPS/1 CAP/30 DAYS)
  19. CALCIFEDIOL [Concomitant]
     Active Substance: CALCIFEDIOL
     Dosage: 0.27 MILLIGRAM, MONTHLY (ONE CAP/30 DAYS)
  20. THIAMINE HYDROCHLORIDE [Concomitant]
     Active Substance: THIAMINE HYDROCHLORIDE
     Indication: Product used for unknown indication
     Dosage: 30 MILLIGRAM, QW (ONE TABLET/7DAYS (1 - 0 - 0 -0))
  21. CYANOCOBALAMIN [Concomitant]
     Active Substance: CYANOCOBALAMIN
     Indication: Product used for unknown indication
  22. ELETRIPTAN [Concomitant]
     Active Substance: ELETRIPTAN
     Indication: Product used for unknown indication
     Dosage: 1 DOSAGE FORM, QD (40 MG 4 TABLETS /1 TABLET/24 H)
  23. ACETAMINOPHEN [Concomitant]
     Active Substance: ACETAMINOPHEN
     Indication: Product used for unknown indication
     Dosage: 1 DOSAGE FORM, TWO TIMES A DAY (ONE TABLET/12H)
  24. OMEPRAZOLE [Concomitant]
     Active Substance: OMEPRAZOLE
     Indication: Product used for unknown indication
     Dosage: 1 DOSAGE FORM, DAILY (ONE CAP/DAY (0 - 0 - 1 - 0))
  25. TOPIRAMATE [Concomitant]
     Active Substance: TOPIRAMATE
     Indication: Product used for unknown indication
     Dosage: 2 DOSAGE FORM, DAILY (2 TABLETS/DAY (0 - 0 - 2 -0))
  26. PALLADONE [Concomitant]
     Active Substance: HYDROMORPHONE HYDROCHLORIDE
     Indication: Product used for unknown indication
     Dosage: 2 DOSAGE FORM, DAILY (2 TABLETS/DAY (0 - 0 - 0 - 2))
  27. PREGABALIN [Concomitant]
     Active Substance: PREGABALIN
     Indication: Product used for unknown indication
     Dosage: 2 DOSAGE FORM, DAILY (2 TABLETS/DAY (0 - 0 - 2 -0))

REACTIONS (12)
  - Cardiotoxicity [Unknown]
  - Sedation [Unknown]
  - Pain [Recovered/Resolved]
  - Depressed mood [Recovered/Resolved]
  - Irritability [Recovered/Resolved]
  - Fatigue [Recovered/Resolved]
  - Somnolence [Recovered/Resolved]
  - Drug interaction [Recovered/Resolved]
  - Intentional product misuse [Recovered/Resolved]
  - Apathy [Recovered/Resolved]
  - Decreased activity [Recovered/Resolved]
  - Antisocial behaviour [Recovered/Resolved]
